FAERS Safety Report 9120913 (Version 2)
Quarter: 2013Q1

REPORT INFORMATION
  Report Type: Spontaneous
  Country: JP (occurrence: JP)
  Receive Date: 20130226
  Receipt Date: 20130313
  Transmission Date: 20140127
  Serious: Yes (Disabling)
  Sender: FDA-Public Use
  Company Number: JP-GLAXOSMITHKLINE-B0866969A

PATIENT
  Age: 29 None
  Sex: Male

DRUGS (16)
  1. LAMICTAL [Suspect]
     Indication: BIPOLAR DISORDER
     Dosage: 25MG ALTERNATE DAYS
     Route: 048
     Dates: start: 20120309, end: 20120510
  2. LAMICTAL [Suspect]
     Indication: BIPOLAR DISORDER
     Dosage: 25MG PER DAY
     Route: 048
     Dates: start: 20120511, end: 20120521
  3. LAMICTAL [Suspect]
     Indication: BIPOLAR DISORDER
     Dosage: 50MG PER DAY
     Route: 048
     Dates: start: 20120522, end: 20120607
  4. LAMICTAL [Suspect]
     Indication: BIPOLAR DISORDER
     Dosage: 100MG PER DAY
     Route: 048
     Dates: start: 20120608, end: 20121011
  5. LAMICTAL [Suspect]
     Indication: BIPOLAR DISORDER
     Route: 048
     Dates: start: 20121012, end: 20130208
  6. MIRTAZAPINE [Suspect]
     Indication: DEPRESSION
     Dosage: 7.5MG PER DAY
     Route: 048
     Dates: start: 20121026, end: 20121108
  7. MIRTAZAPINE [Suspect]
     Indication: DEPRESSION
     Dosage: 15MG PER DAY
     Route: 048
     Dates: start: 20121109, end: 20130124
  8. SEDIEL [Suspect]
     Indication: ANXIETY
     Dosage: 10MG THREE TIMES PER DAY
     Route: 048
     Dates: start: 20121221, end: 20130118
  9. BROMAZEPAM [Suspect]
     Indication: ANXIETY
     Dosage: 2MG THREE TIMES PER DAY
     Route: 048
     Dates: start: 20120928, end: 20130124
  10. ZYPREXA [Suspect]
     Dosage: 2.5MG PER DAY
     Route: 048
     Dates: start: 20111115, end: 20111117
  11. ZYPREXA [Suspect]
     Dosage: 5MG PER DAY
     Route: 048
     Dates: start: 20111118, end: 20120510
  12. ZYPREXA [Suspect]
     Dosage: 2.5MG PER DAY
     Route: 048
     Dates: start: 20120511, end: 20120521
  13. DEPAKENE-R [Concomitant]
     Dosage: 400MG THREE TIMES PER DAY
     Route: 048
     Dates: start: 20110325, end: 20121011
  14. DEPAKENE-R [Concomitant]
     Dosage: 400MG TWICE PER DAY
     Route: 048
     Dates: start: 20121012, end: 20121025
  15. LENDORMIN [Concomitant]
     Indication: INSOMNIA
     Dosage: .25MG PER DAY
     Route: 048
     Dates: start: 20121221
  16. AMOBANTES [Concomitant]
     Indication: INSOMNIA
     Dosage: 7.5MG PER DAY
     Route: 048
     Dates: start: 20100128

REACTIONS (7)
  - Torticollis [Not Recovered/Not Resolved]
  - Dystonia [Unknown]
  - Headache [Unknown]
  - Head discomfort [Unknown]
  - Musculoskeletal stiffness [Unknown]
  - Depersonalisation [Unknown]
  - Anxiety [Unknown]
